FAERS Safety Report 20746083 (Version 1)
Quarter: 2022Q2

REPORT INFORMATION
  Report Type: Report from Study
  Country: US (occurrence: US)
  Receive Date: 20220425
  Receipt Date: 20220425
  Transmission Date: 20220721
  Serious: No
  Sender: FDA-Public Use
  Company Number: US-MIRM-000324

PATIENT
  Age: 5 Year
  Sex: Male

DRUGS (2)
  1. LIVMARLI [Suspect]
     Active Substance: MARALIXIBAT CHLORIDE
     Indication: Product used for unknown indication
     Dates: end: 20220226
  2. LIVMARLI [Suspect]
     Active Substance: MARALIXIBAT CHLORIDE
     Indication: Product used for unknown indication
     Dates: start: 20220227, end: 20220227

REACTIONS (1)
  - Faeces pale [Recovered/Resolved]

NARRATIVE: CASE EVENT DATE: 20220226
